FAERS Safety Report 8371325-2 (Version None)
Quarter: 2012Q2

REPORT INFORMATION
  Report Type: 
  Country: None (occurrence: None)
  Receive Date: 20120518
  Receipt Date: 20120507
  Transmission Date: 20120825
  Serious: Yes (Other)
  Sender: FDA-Public Use
  Company Number: US-JNJFOC-20120113198

PATIENT
  Age: 10 Year
  Sex: Female
  Weight: 25 kg

DRUGS (13)
  1. VITAMIN D [Concomitant]
     Indication: CROHN'S DISEASE
     Route: 048
  2. ZINC SULFATE [Concomitant]
     Indication: CROHN'S DISEASE
     Route: 048
  3. ZYRTEC [Concomitant]
     Indication: MULTIPLE ALLERGIES
     Route: 048
  4. CLARITIN [Concomitant]
     Indication: PREMEDICATION
     Route: 065
  5. TYLENOL [Concomitant]
     Indication: PREMEDICATION
  6. BENADRYL [Concomitant]
     Indication: PREMEDICATION
     Route: 065
  7. REMICADE [Suspect]
     Indication: CROHN'S DISEASE
     Route: 042
     Dates: start: 20110830, end: 20110830
  8. ASACOL [Concomitant]
     Indication: CROHN'S DISEASE
     Route: 048
  9. CORTIFOAM [Concomitant]
     Indication: CROHN'S DISEASE
     Route: 054
  10. FOLIC ACID [Concomitant]
     Indication: CROHN'S DISEASE
     Route: 048
  11. REMICADE [Suspect]
     Route: 042
     Dates: start: 20110101, end: 20110130
  12. IRON [Concomitant]
     Indication: CROHN'S DISEASE
     Route: 048
  13. HYDROCORTISONE [Concomitant]
     Indication: PREMEDICATION
     Route: 065

REACTIONS (4)
  - OXYGEN SATURATION DECREASED [None]
  - WHEEZING [None]
  - INFUSION RELATED REACTION [None]
  - DYSPNOEA [None]
